FAERS Safety Report 10021885 (Version 2)
Quarter: 2014Q2

REPORT INFORMATION
  Report Type: Report from Study
  Country: JP (occurrence: JP)
  Receive Date: 20140319
  Receipt Date: 20140416
  Transmission Date: 20141212
  Serious: Yes (Hospitalization)
  Sender: FDA-Public Use
  Company Number: JP-PFIZER INC-2014075277

PATIENT
  Age: 61 Year
  Sex: Male
  Weight: 59 kg

DRUGS (20)
  1. REVATIO [Suspect]
     Indication: PULMONARY ARTERIAL HYPERTENSION
     Dosage: 20 MG, 1X/DAY
     Route: 048
     Dates: start: 20101006, end: 20101109
  2. REVATIO [Suspect]
     Dosage: 20 MG, 2X/DAY
     Route: 048
     Dates: start: 20101110, end: 20101207
  3. REVATIO [Suspect]
     Dosage: 20 MG, 1X/DAY
     Route: 048
     Dates: start: 20101208, end: 20110705
  4. REVATIO [Suspect]
     Dosage: 20 MG, 2X/DAY
     Route: 048
     Dates: start: 20110706, end: 20110830
  5. REVATIO [Suspect]
     Dosage: 20 MG, 3X/DAY
     Route: 048
     Dates: start: 20110831
  6. PRAZAXA [Suspect]
     Dosage: UNK
     Route: 048
     Dates: start: 20120627, end: 20140125
  7. PREDNISOLONE [Concomitant]
     Dosage: UNK
     Route: 048
  8. LANSOPRAZOLE OD [Concomitant]
     Dosage: UNK
     Route: 048
  9. ONE-ALPHA [Concomitant]
     Dosage: UNK
     Route: 048
  10. HOKUNALIN [Concomitant]
     Dosage: UNK
  11. BONALON [Concomitant]
     Dosage: UNK
     Route: 048
  12. BAKTAR [Concomitant]
     Dosage: UNK
     Route: 048
  13. LOXONIN [Concomitant]
     Dosage: UNK
     Route: 048
  14. URSO [Concomitant]
     Dosage: UNK
     Route: 048
  15. LASIX [Concomitant]
     Dosage: UNK
     Route: 048
  16. MUCODYNE [Concomitant]
     Dosage: UNK
     Route: 048
  17. SPIRIVA [Concomitant]
     Dosage: UNK
  18. IMURAN [Concomitant]
     Dosage: UNK
     Route: 048
     Dates: start: 20111126
  19. PELTAZON [Concomitant]
     Dosage: UNK
     Route: 048
     Dates: start: 20130213
  20. TRACLEER [Concomitant]
     Indication: PULMONARY HYPERTENSION
     Dosage: 62.5 MG, 1X/DAY
     Route: 048
     Dates: start: 20131216

REACTIONS (1)
  - Gastrointestinal haemorrhage [Recovered/Resolved]
